FAERS Safety Report 7636685-6 (Version None)
Quarter: 2011Q3

REPORT INFORMATION
  Report Type: 
  Country: None (occurrence: None)
  Receive Date: 20110726
  Receipt Date: 20110718
  Transmission Date: 20111222
  Serious: No
  Sender: FDA-Public Use
  Company Number: US-BIOGENIDEC-2011BI026916

PATIENT
  Age: 56 Year
  Sex: Female

DRUGS (2)
  1. OPANA [Concomitant]
     Indication: PAIN
  2. TYSABRI [Suspect]
     Indication: MULTIPLE SCLEROSIS
     Route: 042
     Dates: start: 20110101

REACTIONS (5)
  - MUSCULAR WEAKNESS [None]
  - ASTHENIA [None]
  - FALL [None]
  - LIGAMENT RUPTURE [None]
  - NERVE ROOT COMPRESSION [None]
